FAERS Safety Report 5214665-8 (Version None)
Quarter: 2007Q1

REPORT INFORMATION
  Report Type: 
  Country: None (occurrence: None)
  Receive Date: 20070122
  Receipt Date: 20070109
  Transmission Date: 20070707
  Serious: Yes (Hospitalization, Other)
  Sender: FDA-Public Use
  Company Number: BR-ELI_LILLY_AND_COMPANY-BR200701001814

PATIENT
  Age: 57 Year
  Sex: Female

DRUGS (6)
  1. PROZAC [Suspect]
     Indication: DEPRESSION
     Dosage: UNK, UNKNOWN
     Route: 065
     Dates: start: 20010101
  2. ALIMTA [Suspect]
     Indication: LUNG NEOPLASM MALIGNANT
     Dosage: UNK, UNKNOWN
     Route: 065
     Dates: start: 20060401
  3. MYLANTA PLUS [Concomitant]
     Indication: ABDOMINAL PAIN UPPER
     Dosage: UNK, UNKNOWN
     Route: 065
     Dates: start: 19960101
  4. MYLANTA PLUS [Concomitant]
     Dosage: UNK, UNKNOWN
     Route: 065
     Dates: start: 20060401, end: 20061101
  5. ENALAPRIL MALEATE AND HYDROCHLOROTHIAZIDE [Concomitant]
     Indication: HYPERTENSION
     Dosage: UNK, UNKNOWN
     Route: 065
     Dates: start: 19960101, end: 20061201
  6. ANTIBIOTICS [Concomitant]
     Dosage: UNK, UNKNOWN
     Route: 065

REACTIONS (20)
  - ABDOMINAL PAIN UPPER [None]
  - ALOPECIA [None]
  - BLADDER CANCER [None]
  - BLOOD URINE PRESENT [None]
  - CONSTIPATION [None]
  - COUGH [None]
  - DEPRESSION [None]
  - DYSPEPSIA [None]
  - FLATULENCE [None]
  - GENERAL PHYSICAL CONDITION ABNORMAL [None]
  - HYPERSENSITIVITY [None]
  - INSOMNIA [None]
  - KIDNEY ENLARGEMENT [None]
  - LUNG NEOPLASM MALIGNANT [None]
  - MALAISE [None]
  - THROMBOCYTOPENIA [None]
  - URETERIC OBSTRUCTION [None]
  - URINARY INCONTINENCE [None]
  - URINARY TRACT INFECTION [None]
  - WEIGHT INCREASED [None]
